FAERS Safety Report 4492513-1 (Version None)
Quarter: 2004Q4

REPORT INFORMATION
  Report Type: 
  Country: None (occurrence: None)
  Receive Date: 20041029
  Receipt Date: 20041015
  Transmission Date: 20050328
  Serious: Yes (Hospitalization)
  Sender: FDA-Public Use
  Company Number: 239878

PATIENT
  Age: 46 Year
  Sex: Female
  Weight: 51 kg

DRUGS (5)
  1. NORDITROPIN SIMPLEXX [Suspect]
     Indication: POSTPARTUM HYPOPITUITARISM
     Dosage: 0.2 MG, QD
     Dates: start: 20041008, end: 20041015
  2. HYDROCORTISONE [Concomitant]
  3. LEVOTHYROXINE SODIUM [Concomitant]
  4. AVADEN     (GESTODENE) [Concomitant]
  5. LEVONORGESTREL AND ETHINYL ESTRADIOL [Concomitant]

REACTIONS (7)
  - BLOOD THYROID STIMULATING HORMONE DECREASED [None]
  - FLUSHING [None]
  - HOT FLUSH [None]
  - MALAISE [None]
  - PALPITATIONS [None]
  - PRURITUS [None]
  - SINUS TACHYCARDIA [None]
